FAERS Safety Report 8975952 (Version 1)
Quarter: 2012Q4

REPORT INFORMATION
  Report Type: 
  Country: IE (occurrence: IE)
  Receive Date: 20121219
  Receipt Date: 20121219
  Transmission Date: 20130627
  Serious: Yes (Death)
  Sender: FDA-Public Use
  Company Number: IE-GLAXOSMITHKLINE-B0853577A

PATIENT
  Sex: Male

DRUGS (7)
  1. VOTRIENT [Suspect]
     Indication: RENAL CELL CARCINOMA
     Dosage: 600MG per day
     Route: 065
     Dates: start: 20120223
  2. ARANESP [Concomitant]
  3. NEXIUM [Concomitant]
  4. BISOPROLOL [Concomitant]
  5. INSULIN [Concomitant]
  6. UNKNOWN [Concomitant]
  7. UNKNOWN [Concomitant]

REACTIONS (4)
  - Death [Fatal]
  - Blood pressure increased [Unknown]
  - Arthralgia [Recovered/Resolved]
  - Dizziness [Recovered/Resolved]
